FAERS Safety Report 20339881 (Version 1)
Quarter: 2022Q1

REPORT INFORMATION
  Report Type: Report from Study
  Country: US (occurrence: US)
  Receive Date: 20220117
  Receipt Date: 20220117
  Transmission Date: 20220423
  Serious: Yes (Other)
  Sender: FDA-Public Use
  Company Number: US-IPSEN Group, Research and Development-2021-28278

PATIENT
  Age: 6 Year
  Sex: Male

DRUGS (2)
  1. INCRELEX [Suspect]
     Active Substance: MECASERMIN
     Indication: Hypopituitarism
     Route: 058
     Dates: start: 20210927, end: 20220104
  2. INCRELEX [Suspect]
     Active Substance: MECASERMIN
     Indication: Off label use

REACTIONS (5)
  - Loss of consciousness [Recovering/Resolving]
  - Blood glucose decreased [Recovered/Resolved]
  - Blood glucose decreased [Not Recovered/Not Resolved]
  - Confusional state [Not Recovered/Not Resolved]
  - Off label use [Unknown]

NARRATIVE: CASE EVENT DATE: 20210901
